FAERS Safety Report 8320863-7 (Version None)
Quarter: 2012Q2

REPORT INFORMATION
  Report Type: 
  Country: None (occurrence: None)
  Receive Date: 20120430
  Receipt Date: 20120423
  Transmission Date: 20120825
  Serious: Yes (Hospitalization, Disabling, Other)
  Sender: FDA-Public Use
  Company Number: PHHY2011US12028

PATIENT
  Sex: Female
  Weight: 70.385 kg

DRUGS (14)
  1. LISINOPRIL [Concomitant]
     Dosage: 5 MG, ONCE/SINGLE
     Route: 048
  2. OXYCODONE AND ACETAMINOPHEN [Concomitant]
     Indication: PAIN
     Dosage: 1 DF, PRN (5-325 MG)
     Dates: start: 20100310
  3. NITROGLYCERIN [Concomitant]
     Dosage: 0.4 MG, PRN
  4. CALCIUM W/VITAMIN D NOS [Concomitant]
     Dosage: 1 DF, ONCE/SINGLE
  5. ALLOPURINOL [Concomitant]
     Dosage: 300 MG, ONCE/SINGLE
     Route: 048
  6. RECLAST [Suspect]
     Indication: OSTEOPOROSIS
     Dosage: 5 MG,ONCE A YEAR
     Route: 042
     Dates: start: 20100326
  7. FUROSEMIDE [Concomitant]
     Dosage: 20 MG, UNK
     Route: 048
  8. VITAMIN D-VITAMIN K [Concomitant]
     Dosage: 1000 IU, ONCE/SINGLE
  9. TRAMADOL HCL [Concomitant]
     Dosage: 50 MG, BID
     Route: 048
  10. BONIVA [Concomitant]
     Dosage: 150 MG, 1 TABLET ONCE A MONTH
     Route: 048
  11. CIPROFLOXACIN HCL [Concomitant]
     Dosage: 500 MG, BID
  12. ALPRAZOLAM [Concomitant]
     Dosage: 0.5 MG, PRN
     Route: 048
     Dates: start: 20100310
  13. CELEBREX [Concomitant]
     Dosage: 200 MG, BID
     Route: 048
  14. ASPIRIN [Concomitant]
     Dosage: 81 MG, ONCE/SINGLE

REACTIONS (11)
  - NERVE COMPRESSION [None]
  - GLOMERULAR FILTRATION RATE DECREASED [None]
  - FEELING ABNORMAL [None]
  - PAIN IN EXTREMITY [None]
  - ARTHRALGIA [None]
  - LUMBAR RADICULOPATHY [None]
  - BLOOD UREA INCREASED [None]
  - LUMBAR VERTEBRAL FRACTURE [None]
  - MUSCULOSKELETAL PAIN [None]
  - FRACTURED COCCYX [None]
  - FRACTURED SACRUM [None]
